FAERS Safety Report 19731941 (Version 1)
Quarter: 2021Q3

REPORT INFORMATION
  Report Type: Spontaneous
  Country: US (occurrence: US)
  Receive Date: 20210820
  Receipt Date: 20210820
  Transmission Date: 20211014
  Serious: No
  Sender: FDA-Public Use
  Company Number: None

PATIENT
  Age: 76 Year
  Sex: Male
  Weight: 116.12 kg

DRUGS (2)
  1. NIVOLUMAB (NIVOLUMAB 10MG/ML INJ, SOLN) [Suspect]
     Active Substance: NIVOLUMAB
     Indication: LIPOSARCOMA
     Route: 042
     Dates: start: 20201123, end: 20210216
  2. IPILIMUMAB (IPILIMUMAB 5MG/ML INJ, SOLN , 40ML) [Suspect]
     Active Substance: IPILIMUMAB
     Indication: LIPOSARCOMA
     Dosage: ?          OTHER STRENGTH:5MG/ML, 40ML;?
     Route: 042
     Dates: start: 20201123, end: 20210126

REACTIONS (5)
  - Kidney rupture [None]
  - Hypoaesthesia [None]
  - Muscular weakness [None]
  - Metastases to liver [None]
  - Subacute inflammatory demyelinating polyneuropathy [None]

NARRATIVE: CASE EVENT DATE: 20210322
